FAERS Safety Report 9192892 (Version 1)
Quarter: 2013Q1

REPORT INFORMATION
  Report Type: Spontaneous
  Country: IT (occurrence: IT)
  Receive Date: 20130327
  Receipt Date: 20130327
  Transmission Date: 20140127
  Serious: Yes (Other)
  Sender: FDA-Public Use
  Company Number: PHHY2013IT027975

PATIENT
  Age: 56 Year
  Sex: Male

DRUGS (3)
  1. AMOXICILLIN [Suspect]
     Indication: PHARYNGITIS
     Dosage: 1 POSOLOGIC UNIT TOTAL
     Route: 048
     Dates: start: 20121022, end: 20121022
  2. OKI [Concomitant]
  3. KETOROLAC [Concomitant]

REACTIONS (4)
  - Periorbital oedema [Recovered/Resolved]
  - Suffocation feeling [Recovered/Resolved]
  - Hypersensitivity [Recovered/Resolved]
  - Generalised erythema [Recovered/Resolved]
